FAERS Safety Report 9416107 (Version 2)
Quarter: 2013Q3

REPORT INFORMATION
  Report Type: Spontaneous
  Country: US (occurrence: None)
  Receive Date: 20130717
  Receipt Date: 20130820
  Transmission Date: 20140515
  Serious: Yes (Hospitalization)
  Sender: FDA-Public Use
  Company Number: 2013US001945

PATIENT
  Age: 80 Year
  Sex: Female
  Weight: 70 kg

DRUGS (14)
  1. ICLUSIG [Suspect]
     Indication: CHRONIC MYELOID LEUKAEMIA
     Route: 048
     Dates: start: 20130222, end: 201304
  2. CRESTOR (ROSUVASTATIN CALCIUM) [Concomitant]
  3. LEVOTHYROXINE (LEVOTHYROXINE) [Concomitant]
  4. FUROSEMIDE (FUROSEMIDE) [Concomitant]
  5. GABAPENTIN (GABAPENTIN) [Concomitant]
  6. DEXALIN (PHENYLBUTAZONE) [Concomitant]
  7. DIGOXIN (DIGOXIN) [Concomitant]
  8. PLAVIX (CLOPIDOGREL BISULFATE) [Concomitant]
  9. TOPROL XL (METOPROLOL SUCCINATE) (100 MILLIGRAM) (METOPROLOL SUCCINATE) [Concomitant]
  10. ACTONEL (RISEDRONATE SODIUM) [Concomitant]
  11. CENTRUM SILVER (ASCORBIC ACID, CALCIUM, MINERALS NOS, RETINOL, TOCOPHERYL ACETATE, VITAMIN B NOS, VITAMINS NOS, ZINC) [Concomitant]
  12. CHLORODITRIN [Concomitant]
  13. IMIPRAMINE PAMOATE (IMIPRAMINE PAMOATE) [Concomitant]
  14. QUININE SULFATE (QUININE SULFATE) [Concomitant]

REACTIONS (6)
  - Coronary arterial stent insertion [None]
  - Hypotension [None]
  - Cardiac failure congestive [None]
  - Condition aggravated [None]
  - Coronary artery disease [None]
  - Rash [None]
